FAERS Safety Report 9357568 (Version 22)
Quarter: 2015Q4

REPORT INFORMATION
  Report Type: Report from Study
  Country: CA (occurrence: CA)
  Receive Date: 20130620
  Receipt Date: 20151002
  Transmission Date: 20160305
  Serious: Yes (Other)
  Sender: FDA-Public Use
  Company Number: CA-ROCHE-1220438

PATIENT
  Age: 52 Year
  Sex: Female
  Weight: 98 kg

DRUGS (11)
  1. ASA [Concomitant]
     Active Substance: ASPIRIN
  2. SULFASALAZINE. [Concomitant]
     Active Substance: SULFASALAZINE
  3. ACTEMRA [Suspect]
     Active Substance: TOCILIZUMAB
     Indication: RHEUMATOID ARTHRITIS
     Route: 042
     Dates: start: 20130424
  4. HYDROXYCHLOROQUINE [Concomitant]
     Active Substance: HYDROXYCHLOROQUINE
  5. VENLAFAXINE [Concomitant]
     Active Substance: VENLAFAXINE HYDROCHLORIDE
  6. LEUCOVORIN. [Concomitant]
     Active Substance: LEUCOVORIN
  7. FOLIC ACID. [Concomitant]
     Active Substance: FOLIC ACID
  8. ZANTAC [Concomitant]
     Active Substance: RANITIDINE HYDROCHLORIDE
  9. PREDNISONE. [Concomitant]
     Active Substance: PREDNISONE
     Dosage: PREDNISONE DECREASED TO 3 MG FOR 3 MONTHS THEN DECREASING TO 1 MG PER MONTH UNTIL FINISHED.
     Route: 065
  10. FISH OIL [Concomitant]
     Active Substance: FISH OIL
  11. METHOTREXATE [Concomitant]
     Active Substance: METHOTREXATE

REACTIONS (36)
  - Osteoporosis [Not Recovered/Not Resolved]
  - Hyperhidrosis [Recovered/Resolved]
  - Migraine [Not Recovered/Not Resolved]
  - Groin pain [Recovered/Resolved]
  - Nervousness [Recovered/Resolved]
  - Tooth fracture [Recovered/Resolved]
  - Lethargy [Unknown]
  - Pain [Not Recovered/Not Resolved]
  - Ear pain [Not Recovered/Not Resolved]
  - Periarthritis [Not Recovered/Not Resolved]
  - Arthralgia [Not Recovered/Not Resolved]
  - Device breakage [Unknown]
  - Diverticulitis [Unknown]
  - Nasopharyngitis [Not Recovered/Not Resolved]
  - Pain in extremity [Unknown]
  - Weight increased [Unknown]
  - Fall [Unknown]
  - Insomnia [Unknown]
  - Ligament rupture [Unknown]
  - Hypotension [Unknown]
  - Sinus congestion [Not Recovered/Not Resolved]
  - Oropharyngeal pain [Not Recovered/Not Resolved]
  - Ligament sprain [Unknown]
  - Contusion [Unknown]
  - Back injury [Recovering/Resolving]
  - Fatigue [Not Recovered/Not Resolved]
  - Back pain [Not Recovered/Not Resolved]
  - Oral herpes [Recovered/Resolved]
  - Fall [Unknown]
  - Fall [Unknown]
  - Sciatica [Not Recovered/Not Resolved]
  - Neck pain [Not Recovered/Not Resolved]
  - Arthritis [Unknown]
  - Renal cyst [Not Recovered/Not Resolved]
  - Rectal haemorrhage [Recovered/Resolved]
  - Bursitis [Unknown]

NARRATIVE: CASE EVENT DATE: 20130424
